FAERS Safety Report 14597697 (Version 2)
Quarter: 2018Q2

REPORT INFORMATION
  Report Type: Other
  Country: CA (occurrence: CA)
  Receive Date: 20180305
  Receipt Date: 20180422
  Transmission Date: 20180711
  Serious: Yes (Other)
  Sender: FDA-Public Use
  Company Number: CA-APOTEX-2018AP007129

PATIENT
  Age: 5 Year
  Sex: Female

DRUGS (4)
  1. AZATHIOPRINE. [Suspect]
     Active Substance: AZATHIOPRINE
     Indication: IMMUNOSUPPRESSION
     Route: 065
  2. RAPAMUNE [Suspect]
     Active Substance: SIROLIMUS
     Indication: IMMUNOSUPPRESSION
     Route: 065
  3. PROGRAF [Suspect]
     Active Substance: TACROLIMUS\TACROLIMUS ANHYDROUS
     Indication: IMMUNOSUPPRESSION
     Route: 065
  4. MYCO[PHENOLATE [Suspect]
     Active Substance: MYCOPHENOLATE MOFETIL
     Indication: IMMUNOSUPPRESSION
     Route: 065

REACTIONS (10)
  - Inflammatory pain [Recovering/Resolving]
  - Alopecia [Recovering/Resolving]
  - Dermatitis acneiform [Recovering/Resolving]
  - Rash pustular [Recovering/Resolving]
  - Diarrhoea [Recovering/Resolving]
  - Rash papular [Recovering/Resolving]
  - Renal impairment [Recovering/Resolving]
  - Trichodysplasia spinulosa [Recovering/Resolving]
  - Anaemia [Recovering/Resolving]
  - Viral infection [Recovering/Resolving]
